FAERS Safety Report 7753441-9 (Version None)
Quarter: 2011Q3

REPORT INFORMATION
  Report Type: 
  Country: None (occurrence: None)
  Receive Date: 20110915
  Receipt Date: 20110905
  Transmission Date: 20111222
  Serious: Yes (Hospitalization)
  Sender: FDA-Public Use
  Company Number: FR-CELGENEUS-056-50794-11090427

PATIENT
  Sex: Male

DRUGS (13)
  1. VIDAZA [Suspect]
     Route: 041
     Dates: end: 20100921
  2. ADENURIC [Concomitant]
     Dosage: 120 MILLIGRAM
     Route: 048
     Dates: start: 20100801, end: 20101001
  3. VIDAZA [Suspect]
     Route: 041
     Dates: start: 20081119
  4. SPECIAFOLDINE [Concomitant]
     Route: 065
  5. NEBIVOLOL HCL [Concomitant]
     Dosage: 5 MILLIGRAM
     Route: 048
     Dates: start: 20100101, end: 20101012
  6. TRAMADOL HCL [Concomitant]
     Route: 065
  7. COLCHICINE [Concomitant]
     Dosage: .3333 TABLET
     Route: 048
     Dates: start: 20100715, end: 20101001
  8. CANDESARTAN CILEXETIL AND HYDROCHLOROTHIAZIDE [Concomitant]
     Route: 065
     Dates: start: 20100101
  9. METFORMIN HYDROCHLORIDE [Concomitant]
     Dosage: 2000 MILLIGRAM
     Route: 065
     Dates: start: 20070101
  10. SPORANOX [Concomitant]
     Route: 065
  11. FENOFIBRATE [Concomitant]
     Route: 065
     Dates: start: 20100301
  12. OMEPRAZOLE [Concomitant]
     Dosage: 20 MILLIGRAM
     Dates: start: 20100701
  13. DISULONE [Concomitant]
     Route: 065

REACTIONS (1)
  - ORGANISING PNEUMONIA [None]
